FAERS Safety Report 7142297-3 (Version None)
Quarter: 2010Q4

REPORT INFORMATION
  Report Type: 
  Country: None (occurrence: None)
  Receive Date: 20101207
  Receipt Date: 20101129
  Transmission Date: 20110411
  Serious: No
  Sender: FDA-Public Use
  Company Number: US-PFIZER INC-2010159758

PATIENT
  Sex: Female
  Weight: 124.72 kg

DRUGS (13)
  1. LYRICA [Suspect]
     Indication: FIBROMYALGIA
     Dosage: 50 MG, 2X/DAY
     Route: 048
     Dates: start: 20101018
  2. MEXITIL [Concomitant]
     Indication: ARRHYTHMIA
     Dosage: 200 MG, 2X/DAY
     Route: 048
  3. SYNTHROID [Concomitant]
     Indication: THYROID DISORDER
     Dosage: 75 UG, 2X/DAY
     Route: 048
  4. LISINOPRIL [Concomitant]
     Indication: HYPERTENSION
     Dosage: 10 MG, 2X/DAY
     Route: 048
  5. NEXIUM [Concomitant]
     Indication: GASTROOESOPHAGEAL REFLUX DISEASE
     Dosage: 40 MG, 1X/DAY
     Route: 048
  6. TOPROL-XL [Concomitant]
     Indication: HYPERTENSION
     Dosage: 75 MG, 2X/DAY
     Route: 048
  7. TOPROL-XL [Concomitant]
     Indication: ARRHYTHMIA
  8. METHYLFOLATE [Concomitant]
     Indication: FIBROMYALGIA
     Dosage: UNK
     Route: 048
  9. LORAZEPAM [Concomitant]
     Indication: TACHYCARDIA
     Dosage: 1 MG, UNK
     Route: 048
  10. CODEINE [Concomitant]
     Indication: BACK PAIN
     Dosage: 30 MG, UNK
     Route: 048
  11. CODEINE [Concomitant]
     Indication: FIBROMYALGIA
  12. MAGNESIUM [Concomitant]
     Dosage: 400 IU, UNK
     Route: 048
  13. VITAMIN D [Concomitant]
     Dosage: 1000 IU, 1X/DAY
     Route: 048

REACTIONS (1)
  - HERPES SIMPLEX [None]
